FAERS Safety Report 21394441 (Version 1)
Quarter: 2022Q3

REPORT INFORMATION
  Report Type: Spontaneous
  Country: NO (occurrence: NO)
  Receive Date: 20220930
  Receipt Date: 20220930
  Transmission Date: 20221027
  Serious: Yes (Hospitalization)
  Sender: FDA-Public Use
  Company Number: NO-ALKEM LABORATORIES LIMITED-NO-ALKEM-2022-08796

PATIENT
  Age: 44 Year
  Sex: Male

DRUGS (5)
  1. METHADONE HYDROCHLORIDE [Suspect]
     Active Substance: METHADONE HYDROCHLORIDE
     Indication: Substance use disorder
     Dosage: 80 MILLIGRAM, QD
     Route: 065
  2. METHADONE HYDROCHLORIDE [Suspect]
     Active Substance: METHADONE HYDROCHLORIDE
     Dosage: 40 MILLIGRAM
     Route: 065
  3. METHADONE HYDROCHLORIDE [Suspect]
     Active Substance: METHADONE HYDROCHLORIDE
     Dosage: 60 MILLIGRAM
     Route: 065
  4. METHADONE HYDROCHLORIDE [Suspect]
     Active Substance: METHADONE HYDROCHLORIDE
     Dosage: 30 MILLIGRAM
     Route: 065
  5. PREGABALIN [Concomitant]
     Active Substance: PREGABALIN
     Indication: Epilepsy
     Dosage: 300 MILLIGRAM, BID
     Route: 065

REACTIONS (9)
  - Discomfort [Recovering/Resolving]
  - Overdose [Unknown]
  - Myoclonus [Recovering/Resolving]
  - Somnolence [Recovering/Resolving]
  - Bradypnoea [Recovering/Resolving]
  - Hypercapnia [Recovering/Resolving]
  - Hypoglycaemia [Recovering/Resolving]
  - Withdrawal syndrome [Unknown]
  - Drug level increased [Unknown]
